FAERS Safety Report 4436522-7 (Version None)
Quarter: 2004Q3

REPORT INFORMATION
  Report Type: 
  Country: None (occurrence: None)
  Receive Date: 20040830
  Receipt Date: 20040609
  Transmission Date: 20050211
  Serious: No
  Sender: FDA-Public Use
  Company Number: US-BRISTOL-MYERS SQUIBB COMPANY-12609947

PATIENT
  Age: 43 Year
  Sex: Female

DRUGS (3)
  1. ABILIFY [Suspect]
     Indication: BIPOLAR I DISORDER
     Dosage: INITIATED AT 10 MG/DAY NOV-2004; INCREASED TO 20 MG/DAY IN JAN-2004.
     Route: 048
     Dates: start: 20031101, end: 20040501
  2. LITHIUM [Concomitant]
  3. LAMICTAL [Concomitant]

REACTIONS (1)
  - TARDIVE DYSKINESIA [None]
